FAERS Safety Report 23314823 (Version 1)
Quarter: 2023Q4

REPORT INFORMATION
  Report Type: Spontaneous
  Country: CN (occurrence: CN)
  Receive Date: 20231219
  Receipt Date: 20231219
  Transmission Date: 20240110
  Serious: Yes (Other)
  Sender: FDA-Public Use
  Company Number: CN-PHATHOM PHARMACEUTICALS INC.-2023PHT00294

PATIENT
  Sex: Male

DRUGS (1)
  1. VONOPRAZAN [Suspect]
     Active Substance: VONOPRAZAN
     Indication: Gastrooesophageal reflux disease
     Dosage: 20 MG, 1X/DAY
     Route: 048
     Dates: start: 20230421, end: 20230423

REACTIONS (2)
  - Dyspnoea [Recovering/Resolving]
  - Rash [Recovering/Resolving]
